FAERS Safety Report 15531506 (Version 2)
Quarter: 2023Q4

REPORT INFORMATION
  Report Type: Spontaneous
  Country: ES (occurrence: ES)
  Receive Date: 20181019
  Receipt Date: 20231113
  Transmission Date: 20240110
  Serious: Yes (Hospitalization, Other)
  Sender: FDA-Public Use
  Company Number: ES-009507513-1810ESP000836

PATIENT
  Age: 69 Year
  Sex: Male

DRUGS (5)
  1. ENALAPRIL [Suspect]
     Active Substance: ENALAPRIL
     Indication: Hypertension
     Dosage: UNK
     Route: 048
  2. OMEPRAZOLE [Suspect]
     Active Substance: OMEPRAZOLE
     Indication: Gastrooesophageal reflux disease
     Dosage: UNK
     Route: 065
  3. ALLOPURINOL [Suspect]
     Active Substance: ALLOPURINOL
     Indication: Hyperuricaemia
     Dosage: UNK
     Route: 065
  4. POLARAMINE [Suspect]
     Active Substance: DEXCHLORPHENIRAMINE MALEATE
     Indication: Product used for unknown indication
     Dosage: UNK
     Route: 030
     Dates: start: 201706
  5. FENOFIBRATE [Suspect]
     Active Substance: FENOFIBRATE
     Indication: Hypercholesterolaemia
     Dosage: UNK
     Route: 065

REACTIONS (14)
  - Atrial fibrillation [Unknown]
  - Pleuropericarditis [Unknown]
  - Pericarditis constrictive [Unknown]
  - Angina unstable [Unknown]
  - Pleurisy [Unknown]
  - Anaphylactic reaction [Unknown]
  - Cardiac failure [Unknown]
  - Anaphylactic reaction [Unknown]
  - Pleural effusion [Unknown]
  - Systolic dysfunction [Unknown]
  - Surgery [Unknown]
  - Acute coronary syndrome [Unknown]
  - Coronary artery disease [Unknown]
  - Pericardial effusion [Unknown]

NARRATIVE: CASE EVENT DATE: 20170601
